FAERS Safety Report 20189700 (Version 2)
Quarter: 2022Q1

REPORT INFORMATION
  Report Type: Spontaneous
  Country: US (occurrence: US)
  Receive Date: 20211215
  Receipt Date: 20220126
  Transmission Date: 20220423
  Serious: No
  Sender: FDA-Public Use
  Company Number: US-AMGEN-USASP2021195627

PATIENT
  Sex: Female
  Weight: 63.492 kg

DRUGS (1)
  1. NEULASTA [Suspect]
     Active Substance: PEGFILGRASTIM
     Indication: Neutropenia
     Dosage: UNK UNK, AFTER CHEMO
     Route: 065

REACTIONS (5)
  - Device physical property issue [Unknown]
  - Application site rash [Recovered/Resolved]
  - Application site discomfort [Not Recovered/Not Resolved]
  - Application site irritation [Not Recovered/Not Resolved]
  - Application site pain [Not Recovered/Not Resolved]
